FAERS Safety Report 5079517-5 (Version None)
Quarter: 2006Q3

REPORT INFORMATION
  Report Type: 
  Country: None (occurrence: None)
  Receive Date: 20060814
  Receipt Date: 20051115
  Transmission Date: 20061208
  Serious: No
  Sender: FDA-Public Use
  Company Number: US-BRISTOL-MYERS SQUIBB COMPANY-13181771

PATIENT
  Age: 64 Year
  Sex: Male
  Weight: 86 kg

DRUGS (10)
  1. GLUCOVANCE [Suspect]
     Indication: DIABETES MELLITUS
     Dosage: DOSAGE FORM = TABLET
     Route: 048
  2. LASIX [Concomitant]
  3. LIPITOR [Concomitant]
  4. LOPRESSOR [Concomitant]
  5. ZESTRIL [Concomitant]
  6. PROTONIX [Concomitant]
  7. PROZAC [Concomitant]
  8. LYRICA [Concomitant]
     Dates: start: 20051103
  9. FOLIC ACID [Concomitant]
  10. NEURONTIN [Concomitant]
     Dates: end: 20051103

REACTIONS (1)
  - DIARRHOEA [None]
